FAERS Safety Report 8992917 (Version 1)
Quarter: 2013Q1

REPORT INFORMATION
  Report Type: Report from Study
  Country: DE (occurrence: DE)
  Receive Date: 20130102
  Receipt Date: 20130102
  Transmission Date: 20140127
  Serious: Yes (Hospitalization)
  Sender: FDA-Public Use
  Company Number: DE-JNJFOC-20121212195

PATIENT
  Age: 69 Year
  Sex: Female
  Weight: 64 kg

DRUGS (1)
  1. SIMPONI [Suspect]
     Indication: PSORIATIC ARTHROPATHY
     Route: 058
     Dates: start: 20120619

REACTIONS (6)
  - Syncope [Unknown]
  - Dizziness [Unknown]
  - Muscle spasms [Unknown]
  - Asthenia [Unknown]
  - Disorientation [Unknown]
  - Fall [Unknown]
